FAERS Safety Report 17741631 (Version 2)
Quarter: 2020Q2

REPORT INFORMATION
  Report Type: Spontaneous
  Country: CH (occurrence: CH)
  Receive Date: 20200504
  Receipt Date: 20200511
  Transmission Date: 20200714
  Serious: Yes (Life-Threatening, Hospitalization, Other)
  Sender: FDA-Public Use
  Company Number: CH-PFIZER INC-2020169696

PATIENT
  Age: 83 Year
  Sex: Male

DRUGS (19)
  1. ZITHROMAX [Suspect]
     Active Substance: AZITHROMYCIN DIHYDRATE
     Dosage: 500 MG, 1X/DAY
     Route: 048
     Dates: start: 202003, end: 20200404
  2. NEXIUM MUPS [ESOMEPRAZOLE MAGNESIUM] [Concomitant]
     Active Substance: ESOMEPRAZOLE MAGNESIUM
     Dosage: 40 MG, 1X/DAY
     Route: 048
     Dates: start: 20200402
  3. CORDARONE [Suspect]
     Active Substance: AMIODARONE HYDROCHLORIDE
     Dosage: 900 MG
     Route: 042
     Dates: start: 20200331, end: 20200401
  4. AMLODIPINE [Concomitant]
     Active Substance: AMLODIPINE BESYLATE
     Dosage: 10 MG, 1X/DAY
     Route: 048
     Dates: start: 20200330
  5. CORDARONE [Suspect]
     Active Substance: AMIODARONE HYDROCHLORIDE
     Dosage: 200 MG, 3X/DAY
     Route: 048
     Dates: start: 20200413, end: 20200413
  6. CORDARONE [Suspect]
     Active Substance: AMIODARONE HYDROCHLORIDE
     Dosage: 300 MG (IN TOTAL)
     Route: 042
     Dates: start: 20200331, end: 20200331
  7. CORDARONE [Suspect]
     Active Substance: AMIODARONE HYDROCHLORIDE
     Dosage: 300 MG, 3X/DAY ((IN TOTAL))
     Route: 042
     Dates: start: 20200409, end: 20200409
  8. CORDARONE [Suspect]
     Active Substance: AMIODARONE HYDROCHLORIDE
     Dosage: 100 MG (IN TOTAL)
     Route: 042
     Dates: start: 20200412, end: 20200412
  9. METOPROLOL. [Concomitant]
     Active Substance: METOPROLOL
     Dosage: 12.5 MG, 2X/DAY
     Route: 048
     Dates: start: 20200402, end: 20200403
  10. CORDARONE [Suspect]
     Active Substance: AMIODARONE HYDROCHLORIDE
     Dosage: 200 MG, 3X/DAY
     Route: 048
     Dates: start: 20200409, end: 20200409
  11. ASPIRIN CARDIO [Concomitant]
     Active Substance: ASPIRIN
     Dosage: 100 MG, 1X/DAY
     Route: 048
     Dates: start: 20200331
  12. ESIDREX [Concomitant]
     Active Substance: HYDROCHLOROTHIAZIDE
     Dosage: 25 MG, 1X/DAY
     Route: 048
     Dates: start: 20200403
  13. ATORVASTATIN [Concomitant]
     Active Substance: ATORVASTATIN
     Dosage: 40 MG, 1X/DAY
     Route: 048
     Dates: start: 20200331
  14. ZITHROMAX [Suspect]
     Active Substance: AZITHROMYCIN DIHYDRATE
     Dosage: 500 MG, 1X/DAY
     Route: 048
     Dates: start: 20200406, end: 20200406
  15. CORDARONE [Suspect]
     Active Substance: AMIODARONE HYDROCHLORIDE
     Dosage: 200 MG
     Route: 048
     Dates: start: 20200402, end: 20200411
  16. TAZOBAC [Concomitant]
     Active Substance: PIPERACILLIN SODIUM\TAZOBACTAM SODIUM
     Dosage: 4.5 MG, 3X/DAY
     Route: 042
     Dates: start: 20200410
  17. CO-AMOXICILLIN [Concomitant]
     Active Substance: AMOXICILLIN\CLAVULANATE POTASSIUM
     Dosage: 1.2 G, CYCLIC (EVERY 8H)
     Route: 042
     Dates: end: 20200406
  18. CORDARONE [Suspect]
     Active Substance: AMIODARONE HYDROCHLORIDE
     Dosage: 150 MG (IN TOTAL)
     Route: 042
     Dates: start: 20200406, end: 20200406
  19. PRADIF [Concomitant]
     Active Substance: TAMSULOSIN HYDROCHLORIDE
     Dosage: 400 UG, 1X/DAY
     Route: 048

REACTIONS (6)
  - Pyrexia [Unknown]
  - Acute myocardial infarction [Unknown]
  - Hypocalcaemia [Recovered/Resolved]
  - Electrocardiogram QT prolonged [Recovering/Resolving]
  - Acute coronary syndrome [Unknown]
  - Hypernatraemia [Unknown]

NARRATIVE: CASE EVENT DATE: 20200329
